FAERS Safety Report 20566765 (Version 1)
Quarter: 2022Q1

REPORT INFORMATION
  Report Type: Spontaneous
  Country: US (occurrence: None)
  Receive Date: 20220307
  Receipt Date: 20220307
  Transmission Date: 20220423
  Serious: Yes (Life-Threatening, Other)
  Sender: FDA-Public Use
  Company Number: None

PATIENT
  Age: 47 Year
  Sex: Female
  Weight: 110.25 kg

DRUGS (4)
  1. DEODORANT [Suspect]
     Active Substance: TRICLOCARBAN
     Indication: Therapeutic skin care topical
     Dosage: OTHER QUANTITY : 1 SPRAY(S);?FREQUENCY : TWICE A DAY;?
     Route: 061
     Dates: start: 20160301, end: 20220307
  2. NDADLOL [Concomitant]
  3. FLECNIDE [Concomitant]
  4. DEFIBRILLATOR [Concomitant]

REACTIONS (1)
  - Atrial fibrillation [None]

NARRATIVE: CASE EVENT DATE: 20220209
